FAERS Safety Report 24832066 (Version 1)
Quarter: 2025Q1

REPORT INFORMATION
  Report Type: Spontaneous
  Country: US (occurrence: US)
  Receive Date: 20250110
  Receipt Date: 20250110
  Transmission Date: 20250409
  Serious: Yes (Hospitalization)
  Sender: RADIUS PHARM
  Company Number: US-RADIUS HEALTH INC.-2024US009887

PATIENT
  Sex: Female

DRUGS (3)
  1. TYMLOS [Suspect]
     Active Substance: ABALOPARATIDE
     Indication: Senile osteoporosis
     Route: 058
     Dates: start: 20241002
  2. CALCIUM [Concomitant]
     Active Substance: CALCIUM
     Indication: Product used for unknown indication
  3. VITAMIN D NOS [Concomitant]
     Active Substance: CHOLECALCIFEROL\ERGOCALCIFEROL
     Indication: Product used for unknown indication

REACTIONS (8)
  - Suicide attempt [Unknown]
  - Waist circumference increased [Unknown]
  - Loss of personal independence in daily activities [Unknown]
  - Medial tibial stress syndrome [Unknown]
  - Intentional dose omission [Unknown]
  - Arthralgia [Unknown]
  - Abdominal distension [Unknown]
  - Bone pain [Unknown]

NARRATIVE: CASE EVENT DATE: 20240101
